FAERS Safety Report 26124900 (Version 1)
Quarter: 2025Q4

REPORT INFORMATION
  Report Type: Report from Study
  Country: US (occurrence: US)
  Receive Date: 20251205
  Receipt Date: 20251205
  Transmission Date: 20260118
  Serious: Yes (Other)
  Sender: RECORDATI
  Company Number: US-ORPHANEU-2025007743

PATIENT
  Age: 53 Year
  Sex: Female
  Weight: 99.773 kg

DRUGS (8)
  1. SIGNIFOR LAR [Suspect]
     Active Substance: PASIREOTIDE PAMOATE
     Indication: Acromegaly
     Dosage: 40 MG  EVERY 28 DAYS (INJ KIT, EVERY 4 WEEKS)
     Route: 030
  2. SIGNIFOR LAR [Suspect]
     Active Substance: PASIREOTIDE PAMOATE
     Indication: Gigantism
     Dosage: 40 MG  EVERY 28 DAYS (INJ KIT, EVERY 4 WEEKS)
     Route: 030
  3. CABERGOLINE [Concomitant]
     Active Substance: CABERGOLINE
     Indication: Product used for unknown indication
     Dosage: 0.5 MG, BIW (TABLET 0.5 MG)
     Route: 048
     Dates: start: 20241121
  4. FLUOXETINE HYDROCHLORIDE [Concomitant]
     Active Substance: FLUOXETINE HYDROCHLORIDE
     Indication: Product used for unknown indication
     Dosage: 20 MG, QD (CAPSULE 20 MG)
     Route: 048
     Dates: start: 20241121
  5. GABAPENTIN [Concomitant]
     Active Substance: GABAPENTIN
     Indication: Product used for unknown indication
     Dosage: 300 MG, TID (CAPSULE 300 MG)
     Route: 048
     Dates: start: 20241121
  6. LAMOTRIGINE [Concomitant]
     Active Substance: LAMOTRIGINE
     Indication: Product used for unknown indication
     Dosage: 25 MG, QD (TABLET 25 MG)
     Route: 048
     Dates: start: 20241121
  7. LEVOTHYROXINE SODIUM [Concomitant]
     Active Substance: LEVOTHYROXINE SODIUM
     Indication: Product used for unknown indication
     Dosage: 100 MICROGRAM, QD (TABLET 10)
     Route: 048
     Dates: start: 20241121
  8. SINGULAIR [Concomitant]
     Active Substance: MONTELUKAST SODIUM
     Indication: Product used for unknown indication
     Dosage: 10 MG, QD (TABLET 10 MG)
     Route: 048
     Dates: start: 20241121

REACTIONS (2)
  - Blood pressure increased [Recovered/Resolved]
  - Asthenia [Not Recovered/Not Resolved]

NARRATIVE: CASE EVENT DATE: 20250801
